FAERS Safety Report 21053803 (Version 6)
Quarter: 2023Q2

REPORT INFORMATION
  Report Type: Report from Study
  Country: ES (occurrence: ES)
  Receive Date: 20220707
  Receipt Date: 20230616
  Transmission Date: 20230721
  Serious: Yes (Hospitalization)
  Sender: FDA-Public Use
  Company Number: ES-NOVARTISPH-NVSC2021ES237927

PATIENT
  Age: 33 Year
  Sex: Male
  Weight: 74 kg

DRUGS (8)
  1. NAPORAFENIB [Suspect]
     Active Substance: NAPORAFENIB
     Indication: Colorectal cancer
     Dosage: 200 MG, BID
     Route: 048
     Dates: start: 20211015, end: 20211015
  2. RINETERKIB [Suspect]
     Active Substance: RINETERKIB
     Indication: Colorectal cancer
     Dosage: 100 MG, QD
     Route: 048
     Dates: start: 20211015, end: 20211015
  3. DABRAFENIB [Suspect]
     Active Substance: DABRAFENIB
     Indication: Colorectal cancer
     Dosage: 75 MG, BID
     Route: 048
     Dates: start: 20211015, end: 20211015
  4. TROPICAMIDE [Concomitant]
     Active Substance: TROPICAMIDE
     Indication: Ophthalmological examination
     Dosage: UNK
     Route: 065
     Dates: start: 20211008, end: 20211008
  5. CALCIFEDIOL [Concomitant]
     Active Substance: CALCIFEDIOL
     Indication: Prophylaxis
     Dosage: UNK
     Route: 065
  6. IBUPROFEN [Concomitant]
     Active Substance: IBUPROFEN
     Indication: Prophylaxis
     Dosage: UNK
     Route: 065
  7. ACETAMINOPHEN [Concomitant]
     Active Substance: ACETAMINOPHEN
     Indication: Prophylaxis
     Dosage: UNK
     Route: 065
  8. SCOPOLAMINE [Concomitant]
     Active Substance: SCOPOLAMINE
     Indication: Prophylaxis
     Dosage: UNK
     Route: 065

REACTIONS (1)
  - Diarrhoea [Recovered/Resolved]

NARRATIVE: CASE EVENT DATE: 20211016
